FAERS Safety Report 9883097 (Version 1)
Quarter: 2014Q1

REPORT INFORMATION
  Report Type: Spontaneous
  Country: US (occurrence: None)
  Receive Date: 20140205
  Receipt Date: 20140205
  Transmission Date: 20141002
  Serious: Yes (Death)
  Sender: FDA-Public Use
  Company Number: IMP_07285_2014

PATIENT
  Age: 47 Year
  Sex: Female

DRUGS (5)
  1. ALPRAZOLAM [Suspect]
     Dosage: DF ORAL
     Route: 048
  2. METHADONE [Suspect]
     Dosage: DF ORAL
     Route: 048
  3. VERAPAMIL [Suspect]
     Dosage: DF PO
     Route: 048
  4. SERTRALINE [Suspect]
     Dosage: DF ORAL
     Route: 048
  5. DOXEPIN [Suspect]
     Dosage: DF ORAL
     Route: 048

REACTIONS (2)
  - Exposure via ingestion [None]
  - Poisoning [None]
